FAERS Safety Report 5544702-2 (Version None)
Quarter: 2007Q4

REPORT INFORMATION
  Report Type: 
  Country: None (occurrence: None)
  Receive Date: 20071128
  Receipt Date: 20071113
  Transmission Date: 20080405
  Serious: No
  Sender: FDA-Public Use
  Company Number: WSDF_00654

PATIENT
  Age: 31 Year
  Sex: Male
  Weight: 112.9457 kg

DRUGS (4)
  1. WINRHO SDF [Suspect]
     Indication: IDIOPATHIC THROMBOCYTOPENIC PURPURA
     Dosage: 75 UG/KG ONCE IV
     Route: 042
     Dates: start: 20070625, end: 20070625
  2. TYLENOL [Concomitant]
  3. BENADRYL [Concomitant]
  4. PREDNISONE [Concomitant]

REACTIONS (16)
  - ABDOMINAL PAIN UPPER [None]
  - BACK PAIN [None]
  - CHILLS [None]
  - FATIGUE [None]
  - FLATULENCE [None]
  - HAEMOGLOBINURIA [None]
  - HAEMOLYSIS [None]
  - HEADACHE [None]
  - INFLUENZA LIKE ILLNESS [None]
  - INJECTION SITE PAIN [None]
  - JAUNDICE [None]
  - MYALGIA [None]
  - PAIN IN EXTREMITY [None]
  - PYREXIA [None]
  - TREMOR [None]
  - YELLOW SKIN [None]
